FAERS Safety Report 9950914 (Version 1)
Quarter: 2014Q1

REPORT INFORMATION
  Report Type: Spontaneous
  Country: US (occurrence: US)
  Receive Date: 20140304
  Receipt Date: 20140304
  Transmission Date: 20141002
  Serious: No
  Sender: FDA-Public Use
  Company Number: US-AMGEN-USASP2013083517

PATIENT
  Age: 56 Year
  Sex: Female
  Weight: 90.7 kg

DRUGS (8)
  1. ENBREL [Suspect]
     Indication: RHEUMATOID ARTHRITIS
     Dosage: 25 MG, 2 TIMES/WK
     Route: 058
     Dates: start: 2005
  2. MULTIVITAMINS, PLAIN [Concomitant]
     Dosage: UNK
  3. VITAMIN B12                        /00056201/ [Concomitant]
     Dosage: UNK
  4. SYNTHROID [Concomitant]
     Dosage: UNK
  5. NORVASC [Concomitant]
     Dosage: UNK
  6. PRILOSEC                           /00661201/ [Concomitant]
     Dosage: UNK
  7. SPIRONOLACTONE [Concomitant]
     Dosage: UNK
  8. MUCINEX D [Concomitant]
     Dosage: UNK

REACTIONS (3)
  - Oropharyngeal pain [Recovered/Resolved]
  - Bronchitis [Recovered/Resolved]
  - Sinusitis [Recovered/Resolved]
